FAERS Safety Report 10178641 (Version 1)
Quarter: 2014Q2

REPORT INFORMATION
  Report Type: Spontaneous
  Country: PT (occurrence: PT)
  Receive Date: 20140519
  Receipt Date: 20140519
  Transmission Date: 20141212
  Serious: Yes (Other)
  Sender: FDA-Public Use
  Company Number: PT-B.I. PHARMACEUTICALS,INC./RIDGEFIELD-2014-BI-21407PO

PATIENT
  Sex: 0

DRUGS (3)
  1. PRADAXA [Suspect]
     Indication: THROMBOSIS PROPHYLAXIS
     Route: 065
  2. PRADAXA [Suspect]
     Indication: HIP ARTHROPLASTY
  3. PRADAXA [Suspect]
     Indication: KNEE ARTHROPLASTY

REACTIONS (1)
  - Acute pulmonary oedema [Unknown]
